FAERS Safety Report 6944443 (Version 6)
Quarter: 2012Q4

REPORT INFORMATION
  Report Type: 
  Country: DE (occurrence: DE)
  Receive Date: 20090318
  Receipt Date: 20121113
  Transmission Date: 20130627
  Serious: Yes (Life-Threatening, Hospitalization, Other)
  Sender: FDA-Public Use
  Company Number: DE-AMGEN-UK338083

PATIENT
  Age: 83 Year
  Sex: Male
  Weight: 60 kg

DRUGS (4)
  1. VECTIBIX [Suspect]
     Indication: COLORECTAL CANCER
     Dosage: 400 mg, q2wk
     Route: 042
     Dates: start: 20080423, end: 20080625
  2. ALLOPURINOL [Concomitant]
     Dosage: UNK UNK, UNK
     Route: 048
  3. RAMIPRIL [Concomitant]
     Dosage: UNK UNK, UNK
     Route: 048
  4. HYDROCHLOROTHIAZIDE/TRIAMTERENE [Concomitant]
     Dosage: UNK UNK, UNK
     Route: 048

REACTIONS (7)
  - General physical health deterioration [Recovered/Resolved]
  - Skin ulcer [Recovering/Resolving]
  - Skin necrosis [Recovering/Resolving]
  - Rash papular [Recovering/Resolving]
  - Rash [Recovered/Resolved]
  - Abdominal pain upper [Recovered/Resolved]
  - Cholecystitis infective [Recovered/Resolved with Sequelae]
